FAERS Safety Report 8762142 (Version 2)
Quarter: 2012Q4

REPORT INFORMATION
  Report Type: 
  Country: US (occurrence: US)
  Receive Date: 20120824
  Receipt Date: 20121109
  Transmission Date: 20130627
  Serious: Yes (Hospitalization)
  Sender: FDA-Public Use
  Company Number: US-ELI_LILLY_AND_COMPANY-US201104007739

PATIENT
  Sex: Female

DRUGS (5)
  1. FORTEO [Suspect]
     Indication: OSTEOPOROSIS
     Dosage: 20 ug, daily (1/D)
     Dates: start: 20110421
  2. FORTEO [Suspect]
     Dosage: 20 ug, qd
  3. FORTEO [Suspect]
     Dosage: 20 ug, qd
  4. FORTEO [Suspect]
     Dosage: 20 ug, qd
  5. FORTEO [Suspect]
     Dosage: 20 ug, qd

REACTIONS (12)
  - Bone graft [Unknown]
  - Injection site discomfort [Unknown]
  - Injury associated with device [Unknown]
  - Back pain [Unknown]
  - Pain in extremity [Not Recovered/Not Resolved]
  - Nervousness [Unknown]
  - Dizziness [Not Recovered/Not Resolved]
  - Constipation [Unknown]
  - Injection site bruising [Unknown]
  - Injection site pain [Unknown]
  - Bone pain [Unknown]
  - Arthralgia [Unknown]
